FAERS Safety Report 9698440 (Version 2)
Quarter: 2014Q1

REPORT INFORMATION
  Report Type: Spontaneous
  Country: US (occurrence: US)
  Receive Date: 20131120
  Receipt Date: 20140131
  Transmission Date: 20141002
  Serious: Yes (Other)
  Sender: FDA-Public Use
  Company Number: US-BAYER-2013-140173

PATIENT
  Age: 21 Year
  Sex: Female
  Weight: 64.85 kg

DRUGS (1)
  1. MIRENA [Suspect]
     Indication: CONTRACEPTION
     Dosage: 20 MCG/24HR, CONT
     Route: 015
     Dates: start: 20130827, end: 20130926

REACTIONS (4)
  - Device dislocation [Recovered/Resolved]
  - Genital haemorrhage [None]
  - Abdominal pain lower [None]
  - Product quality issue [None]
